FAERS Safety Report 4302546-3 (Version None)
Quarter: 2004Q1

REPORT INFORMATION
  Report Type: 
  Country: None (occurrence: None)
  Receive Date: 20040217
  Receipt Date: 20031118
  Transmission Date: 20041129
  Serious: Yes (Hospitalization)
  Sender: FDA-Public Use
  Company Number: 2003147840US

PATIENT
  Age: 34 Year
  Sex: Female

DRUGS (2)
  1. CYTOTEC [Suspect]
     Indication: INDUCED LABOUR
     Dosage: 25 UG,
     Dates: start: 19990510, end: 19990511
  2. OXYTOCIN 10 USP UNITS IN DEXTROSE 5% [Concomitant]

REACTIONS (1)
  - AMNIOTIC FLUID EMBOLUS [None]
